FAERS Safety Report 9264267 (Version 4)
Quarter: 2013Q4

REPORT INFORMATION
  Report Type: Report from Study
  Country: KR (occurrence: KR)
  Receive Date: 20130430
  Receipt Date: 20131230
  Transmission Date: 20140711
  Serious: Yes (Hospitalization, Other)
  Sender: FDA-Public Use
  Company Number: KR-PFIZER INC-2013119542

PATIENT
  Age: 29 Year
  Sex: Male
  Weight: 108.7 kg

DRUGS (5)
  1. BOSUTINIB [Suspect]
     Indication: CONGENITAL CYSTIC KIDNEY DISEASE
     Dosage: UNK, 1X/DAY
     Route: 048
     Dates: start: 20120105, end: 20130415
  2. NIFEDIPINE [Concomitant]
     Indication: HYPERTENSION
     Dosage: UNK
     Dates: start: 20120802
  3. LOSARTAN [Concomitant]
     Indication: HYPERTENSION
     Dosage: UNK
     Dates: start: 20120802, end: 20130415
  4. IMIDAPRIL [Concomitant]
     Indication: HYPERTENSION
     Dosage: UNK
     Dates: start: 20091117, end: 20130415
  5. VYTORIN [Concomitant]
     Indication: HYPERLIPIDAEMIA
     Dosage: UNK
     Dates: start: 20121227

REACTIONS (2)
  - Renal cyst haemorrhage [Recovered/Resolved with Sequelae]
  - Renal cyst ruptured [Recovered/Resolved with Sequelae]
